FAERS Safety Report 20390774 (Version 2)
Quarter: 2022Q1

REPORT INFORMATION
  Report Type: Report from Study
  Country: CA (occurrence: CA)
  Receive Date: 20220128
  Receipt Date: 20220209
  Transmission Date: 20220423
  Serious: Yes (Death, Other)
  Sender: FDA-Public Use
  Company Number: CA-BAYER-2022A013377

PATIENT

DRUGS (2)
  1. EYLEA [Suspect]
     Active Substance: AFLIBERCEPT
     Indication: Retinal vein occlusion
     Dosage: UNK, 40 MG/ML
  2. EYLEA [Suspect]
     Active Substance: AFLIBERCEPT
     Dosage: UNK
     Dates: start: 20201124, end: 20201124

REACTIONS (1)
  - Death [Fatal]

NARRATIVE: CASE EVENT DATE: 20210701
